FAERS Safety Report 23315440 (Version 2)
Quarter: 2024Q1

REPORT INFORMATION
  Report Type: Spontaneous
  Country: US (occurrence: US)
  Receive Date: 20231219
  Receipt Date: 20240228
  Transmission Date: 20240409
  Serious: Yes (Hospitalization)
  Sender: FDA-Public Use
  Company Number: US-TEVA-VS-3136225

PATIENT
  Sex: Female

DRUGS (1)
  1. METHOTREXATE [Suspect]
     Active Substance: METHOTREXATE
     Indication: Acute lymphocytic leukaemia
     Dosage: TIME INTERVAL: CYCLICAL: CAPIZZI CYCLICAL ESCALATING DOSES OF METHOTREXATE?STARTING AT A DOSE OF ...
     Route: 042

REACTIONS (2)
  - Toxicity to various agents [Unknown]
  - Multiple organ dysfunction syndrome [Unknown]
